FAERS Safety Report 9410854 (Version 1)
Quarter: 2013Q3

REPORT INFORMATION
  Report Type: Spontaneous
  Country: GB (occurrence: GB)
  Receive Date: 20130719
  Receipt Date: 20130719
  Transmission Date: 20140515
  Serious: Yes (Other)
  Sender: FDA-Public Use
  Company Number: GB-ABBOTT-13P-167-1122061-00

PATIENT
  Sex: Male

DRUGS (2)
  1. HUMIRA [Suspect]
     Indication: CROHN^S DISEASE
     Dates: start: 20130323, end: 20130323
  2. HUMIRA [Suspect]
     Dates: start: 20130405, end: 20130405

REACTIONS (4)
  - Pancreatic carcinoma [Unknown]
  - Colectomy [Unknown]
  - Cytomegalovirus infection [Unknown]
  - Drug ineffective [Unknown]
